FAERS Safety Report 25111165 (Version 1)
Quarter: 2025Q1

REPORT INFORMATION
  Report Type: Spontaneous
  Country: CA (occurrence: CA)
  Receive Date: 20250324
  Receipt Date: 20250324
  Transmission Date: 20250409
  Serious: Yes (Life-Threatening, Hospitalization, Other)
  Sender: Haleon PLC
  Company Number: CA-GLAXOSMITHKLINE-CACH2023AMR044193

PATIENT
  Age: 30 Year
  Sex: Male

DRUGS (31)
  1. DICLOFENAC [Suspect]
     Active Substance: DICLOFENAC
     Indication: Neuralgia
     Route: 065
  2. LIDOCAINE [Suspect]
     Active Substance: LIDOCAINE
     Indication: Neuralgia
     Dosage: 3.84 MG, QD
     Route: 042
  3. OLANZAPINE [Suspect]
     Active Substance: OLANZAPINE
     Indication: Neuralgia
     Dosage: 3 MG, QD
     Route: 065
  4. OLANZAPINE [Suspect]
     Active Substance: OLANZAPINE
     Dosage: 2.5 MG, QD
     Route: 065
  5. IBUPROFEN [Suspect]
     Active Substance: IBUPROFEN
     Indication: Neuralgia
     Dosage: 1600 MG, QD
     Route: 065
  6. HYDROMORPHONE HYDROCHLORIDE [Suspect]
     Active Substance: HYDROMORPHONE HYDROCHLORIDE
     Indication: Neuralgia
     Route: 042
  7. PHENYTOIN [Suspect]
     Active Substance: PHENYTOIN
     Indication: Neuralgia
     Dosage: 1500 MG, QD
     Route: 065
  8. ACETAMINOPHEN [Suspect]
     Active Substance: ACETAMINOPHEN
     Indication: Neuralgia
     Dosage: 3900.00 MG, QD
     Route: 065
  9. ACETAMINOPHEN [Suspect]
     Active Substance: ACETAMINOPHEN
     Dosage: 2600.00 MG, QD
     Route: 065
  10. VENLAFAXINE [Suspect]
     Active Substance: VENLAFAXINE HYDROCHLORIDE
     Indication: Neuralgia
     Route: 065
  11. HUMAN IMMUNOGLOBULIN G [Suspect]
     Active Substance: HUMAN IMMUNOGLOBULIN G
     Indication: Guillain-Barre syndrome
     Route: 042
  12. FENTANYL TRANSDERMAL SYSTEM [Suspect]
     Active Substance: FENTANYL
     Indication: Neuralgia
  13. KETAMINE [Suspect]
     Active Substance: KETAMINE
     Indication: Neuralgia
     Dosage: 40 MG, QD
     Route: 065
  14. KETAMINE [Suspect]
     Active Substance: KETAMINE
     Dosage: 30 MG, QD
     Route: 065
  15. ZOPICLONE [Suspect]
     Active Substance: ZOPICLONE
     Indication: Neuralgia
     Dosage: 7.5 MG, QD
     Route: 065
  16. ZOPICLONE [Suspect]
     Active Substance: ZOPICLONE
     Route: 065
  17. DILAUDID [Suspect]
     Active Substance: HYDROMORPHONE HYDROCHLORIDE
     Indication: Neuralgia
     Dosage: 30 MG, QD
     Route: 065
  18. DILAUDID [Suspect]
     Active Substance: HYDROMORPHONE HYDROCHLORIDE
     Dosage: 7 MG, QD
     Route: 065
  19. VENLAFAXINE [Suspect]
     Active Substance: VENLAFAXINE HYDROCHLORIDE
     Indication: Neuralgia
     Route: 065
  20. NABILONE [Suspect]
     Active Substance: NABILONE
     Indication: Neuralgia
     Dosage: 6 MG, QD
     Route: 065
  21. NABILONE [Suspect]
     Active Substance: NABILONE
     Dosage: 2 MG, QD
     Route: 065
  22. GABAPENTIN [Suspect]
     Active Substance: GABAPENTIN
     Indication: Neuralgia
     Dosage: 1200 MG, QD
     Route: 048
  23. GABAPENTIN [Suspect]
     Active Substance: GABAPENTIN
     Dosage: 1800 MG, QD
     Route: 048
  24. GABAPENTIN [Suspect]
     Active Substance: GABAPENTIN
     Dosage: 900 MG, QD
     Route: 065
  25. GABAPENTIN [Suspect]
     Active Substance: GABAPENTIN
     Dosage: 3600 MG, QD
     Route: 065
  26. GABAPENTIN [Suspect]
     Active Substance: GABAPENTIN
     Dosage: 300 MG, QD
     Route: 065
  27. FENTANYL [Suspect]
     Active Substance: FENTANYL
     Indication: Neuralgia
  28. FENTANYL [Suspect]
     Active Substance: FENTANYL
     Route: 065
  29. FENTANYL [Suspect]
     Active Substance: FENTANYL
  30. LIDOCAINE HYDROCHLORIDE [Suspect]
     Active Substance: LIDOCAINE HYDROCHLORIDE
     Indication: Neuralgia
     Route: 042
  31. HYDROMORPHONE [Suspect]
     Active Substance: HYDROMORPHONE
     Indication: Neuralgia
     Route: 042

REACTIONS (4)
  - Inspiratory capacity decreased [Unknown]
  - Drug ineffective [Unknown]
  - Drug ineffective for unapproved indication [Unknown]
  - Off label use [Unknown]
